FAERS Safety Report 13296044 (Version 1)
Quarter: 2017Q1

REPORT INFORMATION
  Report Type: Spontaneous
  Country: BR (occurrence: BR)
  Receive Date: 20170304
  Receipt Date: 20170304
  Transmission Date: 20170428
  Serious: Yes (Other)
  Sender: FDA-Public Use
  Company Number: BR-BAXTER-2017BAX008946

PATIENT
  Age: 44 Year
  Weight: 62.1 kg

DRUGS (5)
  1. GEMCITABINE [Suspect]
     Active Substance: GEMCITABINE\GEMCITABINE HYDROCHLORIDE
     Indication: CHEMOTHERAPY
     Route: 065
     Dates: start: 20161214, end: 20161214
  2. CISPLATIN. [Suspect]
     Active Substance: CISPLATIN
     Dosage: RE-INTRODUCED
     Route: 065
  3. MANITOL [Suspect]
     Active Substance: MANNITOL
     Indication: PRODUCT USED FOR UNKNOWN INDICATION
     Dosage: INFUSION
     Route: 065
     Dates: start: 20161214
  4. GEMCITABINE [Suspect]
     Active Substance: GEMCITABINE\GEMCITABINE HYDROCHLORIDE
     Dosage: RE-INTRODUCED
     Route: 065
  5. CISPLATIN. [Suspect]
     Active Substance: CISPLATIN
     Indication: CHEMOTHERAPY
     Route: 065
     Dates: start: 20161214, end: 20161214

REACTIONS (4)
  - Vision blurred [Unknown]
  - Malaise [Unknown]
  - Dizziness [Unknown]
  - Tremor [Unknown]

NARRATIVE: CASE EVENT DATE: 20161214
